FAERS Safety Report 13739393 (Version 4)
Quarter: 2017Q4

REPORT INFORMATION
  Report Type: Spontaneous
  Country: KR (occurrence: KR)
  Receive Date: 20170711
  Receipt Date: 20171129
  Transmission Date: 20180320
  Serious: Yes (Life-Threatening, Other)
  Sender: FDA-Public Use
  Company Number: KR-009507513-1707KOR000589

PATIENT
  Age: 68 Year
  Sex: Male
  Weight: 78.2 kg

DRUGS (8)
  1. LEVOFEXIN [Concomitant]
     Active Substance: LEVOFLOXACIN
     Indication: PYREXIA
     Dosage: 750 MG, QD
     Route: 042
     Dates: start: 20170626
  2. NOXAFIL [Suspect]
     Active Substance: POSACONAZOLE
     Dosage: 300 MG, QD
     Route: 048
     Dates: start: 20170629, end: 20170629
  3. TRIAXONE [Concomitant]
     Indication: SEPSIS
     Dosage: 2 G, QD
     Route: 042
     Dates: start: 20170626, end: 20170626
  4. TRIAXONE [Concomitant]
     Indication: PYREXIA
  5. PENIRAMIN [Concomitant]
     Indication: ANAPHYLAXIS PROPHYLAXIS
     Dosage: 2 ML, QD
     Route: 042
     Dates: start: 20170626, end: 20170626
  6. PENZAL (ACETAMINOPHEN (+) CAFFEINE (+) DEANOL TARTRATE (+) PROPYPHENAZ [Concomitant]
     Indication: PYREXIA
     Dosage: 650 MG, TID
     Route: 048
     Dates: start: 20170626, end: 20170626
  7. NOXAFIL [Suspect]
     Active Substance: POSACONAZOLE
     Indication: ANTIFUNGAL PROPHYLAXIS
     Dosage: 300 MG, BID
     Route: 048
     Dates: start: 20170628, end: 20170628
  8. DENOGAN [Concomitant]
     Active Substance: PROPACETAMOL HYDROCHLORIDE
     Indication: PYREXIA
     Dosage: 1 G, QD
     Route: 042
     Dates: start: 20170626, end: 20170626

REACTIONS (1)
  - Acute respiratory failure [Recovered/Resolved]

NARRATIVE: CASE EVENT DATE: 20170630
